FAERS Safety Report 13592159 (Version 2)
Quarter: 2017Q3

REPORT INFORMATION
  Report Type: Spontaneous
  Country: DE (occurrence: DE)
  Receive Date: 20170529
  Receipt Date: 20170705
  Transmission Date: 20171127
  Serious: Yes (Death, Hospitalization, Other)
  Sender: FDA-Public Use
  Company Number: DE-BRISTOL-MYERS SQUIBB COMPANY-BMS-2017-045205

PATIENT
  Sex: Male

DRUGS (1)
  1. NIVOLUMAB [Suspect]
     Active Substance: NIVOLUMAB
     Indication: NON-SMALL CELL LUNG CANCER
     Dosage: UNK
     Route: 065
     Dates: start: 2016

REACTIONS (7)
  - Death [Fatal]
  - Abscess neck [Unknown]
  - Sepsis [Unknown]
  - Renal failure [Unknown]
  - Ventricular fibrillation [Unknown]
  - Coma [Unknown]
  - Fatigue [Unknown]
